FAERS Safety Report 19921875 (Version 2)
Quarter: 2021Q4

REPORT INFORMATION
  Report Type: Spontaneous
  Country: US (occurrence: US)
  Receive Date: 20211005
  Receipt Date: 20211011
  Transmission Date: 20220303
  Serious: No
  Sender: FDA-Public Use
  Company Number: US-SA-SAC20211001000905

PATIENT
  Sex: Male

DRUGS (11)
  1. DUPIXENT [Suspect]
     Active Substance: DUPILUMAB
     Indication: Dermatitis atopic
     Dosage: 300 MG, QOW
     Route: 058
  2. ALPRAZOLAM [Concomitant]
     Active Substance: ALPRAZOLAM
  3. ATORVASTATIN [Concomitant]
     Active Substance: ATORVASTATIN
  4. JANUVIA [Concomitant]
     Active Substance: SITAGLIPTIN PHOSPHATE
  5. LAMOTRIGINE [Concomitant]
     Active Substance: LAMOTRIGINE
  6. LISINOPRIL [Concomitant]
     Active Substance: LISINOPRIL
  7. METFORMIN [Concomitant]
     Active Substance: METFORMIN HYDROCHLORIDE
  8. TACROLIMUS [Concomitant]
     Active Substance: TACROLIMUS
  9. VENLAFAXINE [Concomitant]
     Active Substance: VENLAFAXINE HYDROCHLORIDE
  10. BUPROPION HYDROCHLORIDE [Concomitant]
     Active Substance: BUPROPION HYDROCHLORIDE
  11. DEXTROAMPHET SACCHARAT, AMPHET ASPARTATE, DEXTROAMPHET SULFATE AND AMP [Concomitant]
     Active Substance: AMPHETAMINE ASPARTATE\AMPHETAMINE SULFATE\DEXTROAMPHETAMINE SACCHARATE\DEXTROAMPHETAMINE SULFATE

REACTIONS (2)
  - Discomfort [Unknown]
  - Rash [Unknown]
